FAERS Safety Report 9886923 (Version 2)
Quarter: 2014Q1

REPORT INFORMATION
  Report Type: Spontaneous
  Country: US (occurrence: US)
  Receive Date: 20140211
  Receipt Date: 20140211
  Transmission Date: 20141002
  Serious: Yes (Death)
  Sender: FDA-Public Use
  Company Number: US-GE HEALTHCARE MEDICAL DIAGNOSTICS-OSCN-PR-0905S-0252

PATIENT
  Age: 38 Year
  Sex: Female

DRUGS (1)
  1. OMNISCAN [Suspect]
     Indication: ENTERITIS
     Dates: start: 20060919, end: 20060919

REACTIONS (1)
  - Nephrogenic systemic fibrosis [Fatal]
